FAERS Safety Report 9814627 (Version 3)
Quarter: 2014Q1

REPORT INFORMATION
  Report Type: Other
  Country: US (occurrence: US)
  Receive Date: 20140113
  Receipt Date: 20140310
  Transmission Date: 20141002
  Serious: Yes (Other)
  Sender: FDA-Public Use
  Company Number: US-ACORDA-ACO_38712_2013

PATIENT
  Age: 58 Year
  Sex: Female
  Weight: 74.83 kg

DRUGS (5)
  1. AMPYRA [Suspect]
     Indication: MULTIPLE SCLEROSIS
     Dosage: 10 MG, Q 12 HRS
     Route: 048
     Dates: end: 201309
  2. AMPYRA [Suspect]
     Indication: GAIT DISTURBANCE
     Dosage: 10 MG, BID
     Route: 048
     Dates: start: 2013, end: 201310
  3. AMPYRA [Suspect]
     Dosage: 10 MG, BID
     Route: 048
     Dates: start: 2013
  4. BACLOFEN [Concomitant]
     Indication: PRODUCT USED FOR UNKNOWN INDICATION
     Dosage: UNK,UNK
     Route: 065
  5. PAIN RELIEVER [Concomitant]
     Indication: PAIN
     Dosage: UNK,UNK
     Route: 065

REACTIONS (4)
  - Peroneal nerve palsy [Recovered/Resolved]
  - Abasia [Recovering/Resolving]
  - Gait disturbance [Recovered/Resolved]
  - Balance disorder [Recovered/Resolved]
